FAERS Safety Report 4740749-4 (Version None)
Quarter: 2005Q3

REPORT INFORMATION
  Report Type: 
  Country: None (occurrence: None)
  Receive Date: 20050802
  Receipt Date: 20050111
  Transmission Date: 20060218
  Serious: Yes (Death)
  Sender: FDA-Public Use
  Company Number: 211675

PATIENT
  Sex: Female

DRUGS (4)
  1. TNKASE [Suspect]
     Indication: ACUTE MYOCARDIAL INFARCTION
     Dosage: 30 MG
     Dates: start: 20010101
  2. HEPARIN [Concomitant]
  3. ASPIRIN [Concomitant]
  4. NTG (NITROGLYCERIN) [Concomitant]

REACTIONS (1)
  - CEREBRAL HAEMORRHAGE [None]
